FAERS Safety Report 5352956-0 (Version None)
Quarter: 2007Q2

REPORT INFORMATION
  Report Type: 
  Country: None (occurrence: None)
  Receive Date: 20070607
  Receipt Date: 20070518
  Transmission Date: 20071010
  Serious: Yes (Hospitalization)
  Sender: FDA-Public Use
  Company Number: 070503525

PATIENT
  Age: 68 Year
  Sex: Female

DRUGS (4)
  1. IMODIUM [Suspect]
     Indication: DIARRHOEA
     Dosage: ORAL
     Route: 048
     Dates: start: 20070501, end: 20070511
  2. ACETAMINOPHEN [Suspect]
     Dosage: ORAL
     Route: 048
     Dates: start: 20070501, end: 20070511
  3. LORATADINE [Suspect]
     Indication: COUGH
     Dosage: ORAL
     Route: 048
     Dates: start: 20070501, end: 20070511
  4. MUCINEX DM [Suspect]
     Indication: COUGH

REACTIONS (3)
  - DIARRHOEA [None]
  - UNEVALUABLE EVENT [None]
  - VOMITING [None]
